FAERS Safety Report 8480948-1 (Version None)
Quarter: 2012Q3

REPORT INFORMATION
  Report Type: 
  Country: None (occurrence: None)
  Receive Date: 20120702
  Receipt Date: 20120621
  Transmission Date: 20120928
  Serious: Yes (Other)
  Sender: FDA-Public Use
  Company Number: US-JNJFOC-20120611850

PATIENT
  Sex: Female

DRUGS (5)
  1. REMICADE [Suspect]
     Indication: PSORIATIC ARTHROPATHY
     Route: 042
     Dates: start: 20120401
  2. REMICADE [Suspect]
     Indication: GOUT
     Route: 042
     Dates: start: 20120401
  3. THYROID ORAL [Concomitant]
     Indication: THYROID DISORDER
     Route: 048
  4. REMICADE [Suspect]
     Indication: RHEUMATOID ARTHRITIS
     Route: 042
     Dates: start: 20120401
  5. UNSPECIFED MEDICATIONS [Concomitant]
     Route: 065

REACTIONS (1)
  - PARKINSON'S DISEASE [None]
